FAERS Safety Report 25043415 (Version 1)
Quarter: 2025Q1

REPORT INFORMATION
  Report Type: Spontaneous
  Country: TH (occurrence: TH)
  Receive Date: 20250306
  Receipt Date: 20250306
  Transmission Date: 20250409
  Serious: Yes (Other)
  Sender: AMGEN
  Company Number: TH-AMGEN-THASP2025038576

PATIENT

DRUGS (5)
  1. BEVACIZUMAB [Suspect]
     Active Substance: BEVACIZUMAB
     Indication: Retinal haemorrhage
  2. SULFUR HEXAFLUORIDE [Concomitant]
     Active Substance: SULFUR HEXAFLUORIDE
  3. PERFLUTREN [Concomitant]
     Active Substance: PERFLUTREN
  4. RANIBIZUMAB [Concomitant]
     Active Substance: RANIBIZUMAB
  5. AFLIBERCEPT [Concomitant]
     Active Substance: AFLIBERCEPT

REACTIONS (4)
  - Vitreous haemorrhage [Unknown]
  - Haemorrhage [Unknown]
  - Drug effective for unapproved indication [Unknown]
  - Off label use [Unknown]
